FAERS Safety Report 17787436 (Version 2)
Quarter: 2021Q2

REPORT INFORMATION
  Report Type: Spontaneous
  Country: DE (occurrence: DE)
  Receive Date: 20200515
  Receipt Date: 20210624
  Transmission Date: 20210716
  Serious: Yes (Other)
  Sender: FDA-Public Use
  Company Number: DE-CELLTRION INC.-2020DE022320

PATIENT

DRUGS (4)
  1. RITUXIMAB (UNKNOWN) [Suspect]
     Active Substance: RITUXIMAB
     Dosage: ?94 BEFORE LAST MENSTRUAL PERIOD/3 MONTHS BEFORE PREGNANCY
  2. RITUXIMAB (UNKNOWN) [Suspect]
     Active Substance: RITUXIMAB
     Dosage: 465 MG
     Route: 041
  3. RITUXIMAB (UNKNOWN) [Suspect]
     Active Substance: RITUXIMAB
     Indication: MULTIPLE SCLEROSIS
     Dosage: 500 MG, DURING BREASFEEDING
     Route: 041
  4. RITUXIMAB (UNKNOWN) [Suspect]
     Active Substance: RITUXIMAB
     Dosage: 94 MG
     Route: 041

REACTIONS (9)
  - Cervical incompetence [Unknown]
  - Off label use [Unknown]
  - Hypogammaglobulinaemia [Unknown]
  - Urinary tract infection [Unknown]
  - Maternal exposure before pregnancy [Unknown]
  - Premature delivery [Unknown]
  - Therapy interrupted [Unknown]
  - Premature rupture of membranes [Unknown]
  - Intentional product use issue [Unknown]
